FAERS Safety Report 22030076 (Version 1)
Quarter: 2023Q1

REPORT INFORMATION
  Report Type: Spontaneous
  Country: US (occurrence: US)
  Receive Date: 20230223
  Receipt Date: 20230223
  Transmission Date: 20230418
  Serious: Yes (Other)
  Sender: FDA-Public Use
  Company Number: US-FreseniusKabi-FK202302273

PATIENT
  Age: 33 Year
  Sex: Female

DRUGS (4)
  1. VINBLASTINE [Suspect]
     Active Substance: VINBLASTINE
     Indication: Hodgkin^s disease
     Dosage: ABVD REGIMEN; CYCLE 2 WAS GIVEN WITH DOSE REDUCTION
  2. DOXORUBICIN [Suspect]
     Active Substance: DOXORUBICIN
     Indication: Hodgkin^s disease
     Dosage: ABVD REGIMEN; CYCLE 2 WAS GIVEN WITH DOSE REDUCTION
  3. DACARBAZINE [Suspect]
     Active Substance: DACARBAZINE
     Indication: Hodgkin^s disease
     Dosage: ABVD REGIMEN; CYCLE 2 WAS GIVEN WITH DOSE REDUCTION
  4. BLEOMYCIN [Suspect]
     Active Substance: BLEOMYCIN SULFATE
     Indication: Hodgkin^s disease
     Dosage: ABVD REGIMEN; CYCLE 2 WAS GIVEN WITH DOSE REDUCTION

REACTIONS (2)
  - Liver injury [Unknown]
  - Hypertransaminasaemia [Unknown]
